FAERS Safety Report 4379868-3 (Version None)
Quarter: 2004Q2

REPORT INFORMATION
  Report Type: 
  Country: None (occurrence: None)
  Receive Date: 20040614
  Receipt Date: 20040528
  Transmission Date: 20050107
  Serious: Yes (Hospitalization)
  Sender: FDA-Public Use
  Company Number: 200411816GDS

PATIENT
  Age: 77 Year
  Sex: Male

DRUGS (5)
  1. ASPIRIN [Suspect]
     Indication: PROPHYLAXIS
     Dosage: 100 MG, QD, ORAL
     Route: 048
  2. CLOPIDOGREL BISULFATE [Suspect]
     Indication: PROPHYLAXIS
     Dosage: 75 MG, QD, ORAL
     Route: 048
  3. ATENOLOL [Concomitant]
  4. METFORMIN HCL [Concomitant]
  5. FOLIC ACID [Concomitant]

REACTIONS (1)
  - SUBARACHNOID HAEMORRHAGE [None]
